FAERS Safety Report 4389021-5 (Version None)
Quarter: 2004Q2

REPORT INFORMATION
  Report Type: 
  Country: None (occurrence: None)
  Receive Date: 20040628
  Receipt Date: 20040614
  Transmission Date: 20050107
  Serious: Yes (Hospitalization)
  Sender: FDA-Public Use
  Company Number: 2004039194

PATIENT
  Age: 75 Year
  Sex: Female
  Weight: 59.6 kg

DRUGS (5)
  1. ZITHROMAX [Suspect]
     Indication: PHARYNGITIS
     Dosage: 500 MG (500 MG, 1 IN 1 D), ORAL
     Route: 048
     Dates: start: 20040526, end: 20040526
  2. LOXOPROFEN SODIUM (LOXOPROFEN SODIUM) [Concomitant]
  3. PL GRAN, (CAFFEINE, PARACETAMOL, PROMETHAZINE METHYLENE DISALICYLATE, [Concomitant]
  4. TEPRENONE (TEPRENONE) [Concomitant]
  5. CETYLPYRIDINIUM CHLORIDE (CETYLPYRIDINIUM CHLORIDE) [Concomitant]

REACTIONS (7)
  - DIARRHOEA [None]
  - ENTEROCOLITIS [None]
  - ERYTHEMA [None]
  - GASTROINTESTINAL DISORDER [None]
  - HAEMATOCHEZIA [None]
  - LARGE INTESTINAL ULCER [None]
  - VOMITING [None]
